FAERS Safety Report 10508971 (Version 1)
Quarter: 2014Q3

REPORT INFORMATION
  Report Type: Spontaneous
  Country: US (occurrence: None)
  Receive Date: 20140915
  Receipt Date: 20140915
  Transmission Date: 20150326
  Serious: Yes (Hospitalization, Other)
  Sender: FDA-Public Use
  Company Number: 2014-US-008466

PATIENT
  Age: 28 Year
  Sex: Male

DRUGS (3)
  1. XYREM [Suspect]
     Active Substance: SODIUM OXYBATE
     Indication: NARCOLEPSY
     Route: 048
     Dates: start: 201406, end: 2014
  2. NUVIGIL [Suspect]
     Active Substance: ARMODAFINIL
     Indication: AGITATION
     Dates: start: 201406
  3. ADDERALL [Suspect]
     Active Substance: AMPHETAMINE ASPARTATE\AMPHETAMINE SULFATE\DEXTROAMPHETAMINE SACCHARATE\DEXTROAMPHETAMINE SULFATE
     Indication: PRODUCT USED FOR UNKNOWN INDICATION

REACTIONS (7)
  - Agitation [None]
  - Blood pressure increased [None]
  - Back pain [None]
  - Feeling abnormal [None]
  - Feeling drunk [None]
  - Psychotic disorder [None]
  - Insomnia [None]

NARRATIVE: CASE EVENT DATE: 201406
